FAERS Safety Report 5639898-8 (Version None)
Quarter: 2008Q1

REPORT INFORMATION
  Report Type: 
  Country: None (occurrence: None)
  Receive Date: 20080225
  Receipt Date: 20080212
  Transmission Date: 20080703
  Serious: Yes (Life-Threatening)
  Sender: FDA-Public Use
  Company Number: B0508847A

PATIENT
  Age: 25 Year
  Sex: Female

DRUGS (6)
  1. CISATRACURIUM BESYLATE INJECTION (CISATRACURIUM BESYLATE) [Suspect]
     Indication: GENERAL ANAESTHESIA
     Dosage: SINGLE DOSE; INTRAVENOUS
     Route: 042
     Dates: start: 20070716, end: 20070716
  2. MIDAZOLAM HYDROCHLORIDE [Suspect]
     Indication: GENERAL ANAESTHESIA
     Dosage: SINGLE DOSE; INTRAVENOUS
     Route: 042
     Dates: start: 20070716, end: 20070716
  3. PROPOFOL [Suspect]
     Indication: GENERAL ANAESTHESIA
     Dosage: SINGLE DOSE; INTRAVENOUS
     Route: 042
     Dates: start: 20070716, end: 20070716
  4. SUFENTANIL CITRATE [Suspect]
     Indication: GENERAL ANAESTHESIA
     Dosage: SINGLE DOSE; INTRAVENOUS
     Route: 042
     Dates: start: 20070716, end: 20070716
  5. CEPHAZOLIN SODIUM INJECTION [Suspect]
     Indication: ANTIBIOTIC PROPHYLAXIS
     Dosage: SINGLE DOSE; INTRAVENOUS
     Route: 042
     Dates: start: 20070716, end: 20070716
  6. LIDOCAINE HCL [Suspect]
     Dosage: SINGLE DOSE;
     Dates: start: 20070716, end: 20070716

REACTIONS (5)
  - BRONCHOSPASM [None]
  - GENERALISED ERYTHEMA [None]
  - HYPOTENSION [None]
  - OXYGEN SATURATION DECREASED [None]
  - SHOCK [None]
